FAERS Safety Report 9633527 (Version 2)
Quarter: 2013Q4

REPORT INFORMATION
  Report Type: Spontaneous
  Country: DE (occurrence: DE)
  Receive Date: 20131021
  Receipt Date: 20131028
  Transmission Date: 20140711
  Serious: Yes (Other)
  Sender: FDA-Public Use
  Company Number: PHHY2013DE117634

PATIENT
  Sex: Male

DRUGS (2)
  1. SANDIMMUN-OPTORAL [Suspect]
     Indication: TRANSPLANT REJECTION
     Dosage: 75 MG, BID
     Route: 048
     Dates: start: 2006, end: 2010
  2. SANDIMMUN-OPTORAL [Suspect]
     Dosage: 50 MG, BID
     Route: 048
     Dates: start: 2010

REACTIONS (3)
  - Type 2 diabetes mellitus [Not Recovered/Not Resolved]
  - Hyperlipidaemia [Not Recovered/Not Resolved]
  - Hypertension [Not Recovered/Not Resolved]
